FAERS Safety Report 4972783-3 (Version None)
Quarter: 2006Q2

REPORT INFORMATION
  Report Type: 
  Country: None (occurrence: None)
  Receive Date: 20060410
  Receipt Date: 20060224
  Transmission Date: 20061013
  Serious: Yes (Life-Threatening, Hospitalization)
  Sender: FDA-Public Use
  Company Number: CERZ-10404

PATIENT
  Age: 24 Year
  Sex: Male
  Weight: 66.5 kg

DRUGS (4)
  1. CEREZYME [Suspect]
     Indication: GAUCHER'S DISEASE
     Dosage: 66.5 U/KG Q2WKS IV
     Route: 042
     Dates: start: 19980201
  2. OXYCODONE HCL [Concomitant]
  3. OXYCONTIN [Concomitant]
  4. FOSAMAX [Concomitant]

REACTIONS (11)
  - BACK PAIN [None]
  - BONE PAIN [None]
  - CENTRAL LINE INFECTION [None]
  - ENDOCARDITIS [None]
  - GENERALISED OEDEMA [None]
  - INFECTION [None]
  - OEDEMA [None]
  - POOR VENOUS ACCESS [None]
  - PROCEDURAL COMPLICATION [None]
  - SPLENOMEGALY [None]
  - STAPHYLOCOCCAL SEPSIS [None]
